FAERS Safety Report 15711805 (Version 2)
Quarter: 2018Q4

REPORT INFORMATION
  Report Type: Spontaneous
  Country: US (occurrence: US)
  Receive Date: 20181212
  Receipt Date: 20181214
  Transmission Date: 20190205
  Serious: No
  Sender: FDA-Public Use
  Company Number: US-LUPIN PHARMACEUTICALS INC.-2018-06506

PATIENT
  Sex: Female

DRUGS (1)
  1. LEVONORGESTREL AND ETHINYL ESTRADIOL TABLETS [Suspect]
     Active Substance: ETHINYL ESTRADIOL\LEVONORGESTREL
     Indication: CONTRACEPTION
     Dosage: TOOK 2 PILLS IN ONE DAY, CONTINUED WITH ONE PILL DAILY THEREAFTER
     Route: 065

REACTIONS (3)
  - Extra dose administered [Unknown]
  - No adverse event [Unknown]
  - Inappropriate schedule of product administration [Unknown]
